FAERS Safety Report 21355401 (Version 1)
Quarter: 2022Q3

REPORT INFORMATION
  Report Type: Report from Study
  Country: US (occurrence: US)
  Receive Date: 20220920
  Receipt Date: 20220920
  Transmission Date: 20221026
  Serious: No
  Sender: FDA-Public Use
  Company Number: US-ABBVIE-4127266

PATIENT
  Age: 39 Year
  Sex: Female

DRUGS (11)
  1. HUMIRA [Suspect]
     Active Substance: ADALIMUMAB
     Indication: Colitis ulcerative
     Route: 058
     Dates: start: 20090629, end: 200908
  2. METHYLPREDNISOLONE [Concomitant]
     Active Substance: METHYLPREDNISOLONE
     Indication: Colitis ulcerative
     Dosage: 4GM-40MG ENEMA DAILY AS REQUIRED
     Dates: start: 20140701
  3. AZATHIOPRINE [Suspect]
     Active Substance: AZATHIOPRINE
     Indication: Colitis ulcerative
     Route: 048
     Dates: start: 20070109, end: 20181130
  4. MESALAMINE [Concomitant]
     Active Substance: MESALAMINE
     Indication: Colitis ulcerative
     Dosage: DOSAGE: 2.4 GRAM
     Route: 048
     Dates: start: 20050810
  5. MESALAMINE [Concomitant]
     Active Substance: MESALAMINE
     Indication: Colitis ulcerative
     Dosage: DOSAGE: 1 GRAM
     Route: 054
     Dates: start: 20050810
  6. MESALAMINE [Concomitant]
     Active Substance: MESALAMINE
     Indication: Colitis ulcerative
     Dosage: 4GM-40MG ENEMA DAILY AS REQUIRED
     Route: 054
     Dates: start: 20140701
  7. LEVONORGESTREL [Concomitant]
     Active Substance: LEVONORGESTREL
     Indication: Contraception
     Dosage: DOSAGE: 20 MCG/HR Q5YR
     Route: 050
     Dates: start: 201507
  8. VITAMIN B12 [Concomitant]
     Active Substance: CYANOCOBALAMIN
     Indication: Anaemia
     Dosage: DOSAGE: 1000 MCG
     Route: 058
     Dates: start: 20160524
  9. VEDOLIZUMAB [Concomitant]
     Active Substance: VEDOLIZUMAB
     Indication: Colitis ulcerative
     Dosage: WEEK 0, 2, 6 THEN Q8WK
     Dates: start: 20161107
  10. HYOSCYAMINE SULFATE [Concomitant]
     Active Substance: HYOSCYAMINE SULFATE
     Indication: Abdominal pain
     Dosage: AS REQUIRED
     Dates: start: 20161016
  11. ENOXAPARIN [Concomitant]
     Active Substance: ENOXAPARIN
     Indication: Mesenteric vein thrombosis
     Route: 058
     Dates: start: 20190301

REACTIONS (1)
  - Maternal exposure during pregnancy [Unknown]
